FAERS Safety Report 7846216-3 (Version None)
Quarter: 2011Q4

REPORT INFORMATION
  Report Type: 
  Country: None (occurrence: None)
  Receive Date: 20111025
  Receipt Date: 20111017
  Transmission Date: 20120403
  Serious: Yes (Death, Hospitalization)
  Sender: FDA-Public Use
  Company Number: DZ-ROCHE-1005283

PATIENT
  Sex: Female

DRUGS (2)
  1. AVASTIN [Suspect]
     Indication: BREAST CANCER
     Route: 042
     Dates: start: 20110424, end: 20110614
  2. VINORELBINE [Suspect]
     Indication: BREAST CANCER
     Route: 042
     Dates: start: 20110424, end: 20110614

REACTIONS (7)
  - HAEMATURIA [None]
  - SEPSIS [None]
  - PYREXIA [None]
  - THROMBOCYTOPENIA [None]
  - SEPTIC SHOCK [None]
  - URINARY TRACT INFECTION [None]
  - GENERAL PHYSICAL CONDITION ABNORMAL [None]
